FAERS Safety Report 6088678-0 (Version None)
Quarter: 2009Q1

REPORT INFORMATION
  Report Type: 
  Country: None (occurrence: None)
  Receive Date: 20090224
  Receipt Date: 20090219
  Transmission Date: 20090719
  Serious: Yes (Other)
  Sender: FDA-Public Use
  Company Number: US-BRISTOL-MYERS SQUIBB COMPANY-14512586

PATIENT
  Sex: Female

DRUGS (1)
  1. ORENCIA [Suspect]

REACTIONS (4)
  - ARTHRITIS INFECTIVE [None]
  - ERYTHEMA MULTIFORME [None]
  - HERPES SIMPLEX [None]
  - LOCALISED INFECTION [None]
